FAERS Safety Report 22538444 (Version 1)
Quarter: 2023Q2

REPORT INFORMATION
  Report Type: Spontaneous
  Country: None (occurrence: US)
  Receive Date: 20230609
  Receipt Date: 20230609
  Transmission Date: 20230722
  Serious: Yes (Other)
  Sender: FDA-Public Use
  Company Number: US-Edgewell Personal Care, LLC-2142505

PATIENT
  Age: 4 Year
  Sex: Male

DRUGS (1)
  1. BANANA BOAT (AVOBENZONE\HOMOSALATE\OCTISALATE\OCTOCRYLENE\OXYBENZONE) [Suspect]
     Active Substance: AVOBENZONE\HOMOSALATE\OCTISALATE\OCTOCRYLENE\OXYBENZONE
     Indication: Prophylaxis against solar radiation
     Route: 061
     Dates: start: 20230529, end: 20230529

REACTIONS (1)
  - Thermal burn [Recovering/Resolving]

NARRATIVE: CASE EVENT DATE: 20230529
